FAERS Safety Report 12091974 (Version 4)
Quarter: 2016Q2

REPORT INFORMATION
  Report Type: Report from Study
  Country: US (occurrence: US)
  Receive Date: 20160219
  Receipt Date: 20160531
  Transmission Date: 20160815
  Serious: No
  Sender: FDA-Public Use
  Company Number: PHEH2016US004006

PATIENT
  Age: 83 Year
  Sex: Female

DRUGS (1)
  1. AFINITOR [Suspect]
     Active Substance: EVEROLIMUS
     Indication: BREAST CANCER
     Dosage: 7.5 MG, QD
     Route: 048
     Dates: start: 20160210

REACTIONS (5)
  - Genital pain [Unknown]
  - Joint swelling [Unknown]
  - Cough [Not Recovered/Not Resolved]
  - Gingival pain [Unknown]
  - Oral pain [Unknown]

NARRATIVE: CASE EVENT DATE: 20160212
